FAERS Safety Report 9410990 (Version 2)
Quarter: 2013Q4

REPORT INFORMATION
  Report Type: Spontaneous
  Country: US (occurrence: US)
  Receive Date: 20130719
  Receipt Date: 20131227
  Transmission Date: 20140711
  Serious: Yes (Hospitalization)
  Sender: FDA-Public Use
  Company Number: US-B.I. PHARMACEUTICALS,INC./RIDGEFIELD-2013-BI-20960BP

PATIENT
  Sex: Male
  Weight: 149.69 kg

DRUGS (11)
  1. PRADAXA [Suspect]
     Indication: ANTICOAGULANT THERAPY
     Dosage: 300 MG
     Dates: start: 20120526, end: 20120614
  2. PRADAXA [Suspect]
     Indication: ATRIAL FIBRILLATION
  3. LOPRESSOR [Concomitant]
     Dosage: 25 MG
  4. VOLTAREN [Concomitant]
     Dosage: 150 MG
  5. EFFEXOR [Concomitant]
     Indication: DEPRESSION
     Dosage: 150 MG
  6. GLIPIZIDE [Concomitant]
     Indication: DIABETES MELLITUS
     Dosage: 10 MG
  7. BENADRYL [Concomitant]
  8. AMIODARONE [Concomitant]
     Dosage: 400 MG
  9. LASIX [Concomitant]
  10. KEFLEX [Concomitant]
     Dosage: 1500 MG
  11. CLINDAMYCIN [Concomitant]
     Dosage: 450 MG

REACTIONS (3)
  - Iron deficiency anaemia [Unknown]
  - Gastrointestinal haemorrhage [Unknown]
  - Renal failure acute [Recovered/Resolved]
